FAERS Safety Report 4773129-6 (Version None)
Quarter: 2005Q3

REPORT INFORMATION
  Report Type: 
  Country: None (occurrence: None)
  Receive Date: 20050919
  Receipt Date: 20050906
  Transmission Date: 20060218
  Serious: Yes (Other)
  Sender: FDA-Public Use
  Company Number: CA-NOVOPROD-246784

PATIENT
  Age: 0 Year

DRUGS (1)
  1. NIASTASE [Suspect]
     Indication: CEREBELLAR HAEMORRHAGE
     Dosage: 40 UG/KG, UNK

REACTIONS (1)
  - TROPONIN INCREASED [None]
